FAERS Safety Report 5559809-3 (Version None)
Quarter: 2007Q4

REPORT INFORMATION
  Report Type: 
  Country: None (occurrence: None)
  Receive Date: 20071214
  Receipt Date: 20071015
  Transmission Date: 20080405
  Serious: No
  Sender: FDA-Public Use
  Company Number: US-ABBOTT-07P-163-0421047-00

PATIENT
  Sex: Female
  Weight: 64.014 kg

DRUGS (1)
  1. HUMIRA [Suspect]
     Indication: RHEUMATOID ARTHRITIS
     Route: 058
     Dates: start: 20070611, end: 20071001

REACTIONS (5)
  - INJECTION SITE PUSTULE [None]
  - INJECTION SITE ULCER [None]
  - PURPURA [None]
  - RASH [None]
  - RASH PRURITIC [None]
